FAERS Safety Report 6465111-8 (Version None)
Quarter: 2009Q4

REPORT INFORMATION
  Report Type: 
  Country: None (occurrence: None)
  Receive Date: 20091119
  Receipt Date: 20090910
  Transmission Date: 20100525
  Serious: No
  Sender: FDA-Public Use
  Company Number: WAES0909USA01288

PATIENT
  Sex: Female

DRUGS (3)
  1. JANUVIA [Suspect]
     Indication: TYPE 2 DIABETES MELLITUS
     Dosage: PO
     Route: 048
  2. ACTOS [Concomitant]
  3. METFORMIN HCL [Concomitant]

REACTIONS (1)
  - DRUG INEFFECTIVE [None]
